FAERS Safety Report 11986757 (Version 1)
Quarter: 2016Q1

REPORT INFORMATION
  Report Type: Spontaneous
  Country: US (occurrence: None)
  Receive Date: 20160201
  Receipt Date: 20160201
  Transmission Date: 20160526
  Serious: No
  Sender: FDA-Public Use
  Company Number: None

PATIENT

DRUGS (1)
  1. NITROGLYCERIN SET WITH DUO-VENT SPIKE [Suspect]
     Active Substance: NITROGLYCERIN

REACTIONS (5)
  - Wrong technique in product usage process [None]
  - Pulse absent [None]
  - Incorrect drug administration rate [None]
  - Device issue [None]
  - Blood pressure decreased [None]
